FAERS Safety Report 19252645 (Version 1)
Quarter: 2021Q2

REPORT INFORMATION
  Report Type: Spontaneous
  Country: US (occurrence: US)
  Receive Date: 20210512
  Receipt Date: 20210512
  Transmission Date: 20210717
  Serious: Yes (Hospitalization)
  Sender: FDA-Public Use
  Company Number: None

PATIENT
  Age: 55 Year
  Sex: Male

DRUGS (19)
  1. ALBUTEROL HFA [Concomitant]
     Active Substance: ALBUTEROL SULFATE
  2. ACETAMIN [Concomitant]
     Active Substance: ACETAMINOPHEN
  3. BUMETANIDE. [Concomitant]
     Active Substance: BUMETANIDE
  4. MIDODRINE [Concomitant]
     Active Substance: MIDODRINE
  5. PROPRANOLOL [Concomitant]
     Active Substance: PROPRANOLOL HYDROCHLORIDE
  6. AMOXICILLIN. [Concomitant]
     Active Substance: AMOXICILLIN
  7. SERTRALINE [Concomitant]
     Active Substance: SERTRALINE HYDROCHLORIDE
  8. GLIPIZIDE ER [Concomitant]
     Active Substance: GLIPIZIDE
  9. ONDANSETRON [Concomitant]
     Active Substance: ONDANSETRON
  10. SMZ/TMP DS [Concomitant]
     Active Substance: SULFAMETHOXAZOLE\TRIMETHOPRIM
  11. AMBRISENTAN 5MG TAB [Suspect]
     Active Substance: AMBRISENTAN
     Indication: PULMONARY HYPERTENSION
     Route: 048
     Dates: start: 20210331
  12. LACTULOSE. [Concomitant]
     Active Substance: LACTULOSE
  13. SPIRIVA HANDHLR [Concomitant]
  14. XIFAXAN [Concomitant]
     Active Substance: RIFAXIMIN
  15. CIPROFLOXACN [Concomitant]
     Active Substance: CIPROFLOXACIN
  16. FUROSEMIDE. [Concomitant]
     Active Substance: FUROSEMIDE
  17. LIDOCAINE. [Concomitant]
     Active Substance: LIDOCAINE
  18. SPIRONOLACT [Concomitant]
     Active Substance: SPIRONOLACTONE
  19. VITAMIN D [Concomitant]
     Active Substance: VITAMIN D NOS

REACTIONS (1)
  - Transplant [None]

NARRATIVE: CASE EVENT DATE: 20210512
